FAERS Safety Report 7753963-0 (Version None)
Quarter: 2011Q3

REPORT INFORMATION
  Report Type: 
  Country: None (occurrence: None)
  Receive Date: 20110915
  Receipt Date: 20110907
  Transmission Date: 20111222
  Serious: Yes (Congenital Anomaly)
  Sender: FDA-Public Use
  Company Number: AU-ASTRAZENECA-2011SE53517

PATIENT
  Sex: Female

DRUGS (1)
  1. ATACAND [Suspect]
     Route: 015

REACTIONS (1)
  - CONGENITAL ANOMALY [None]
